FAERS Safety Report 24579602 (Version 1)
Quarter: 2024Q4

REPORT INFORMATION
  Report Type: Spontaneous
  Country: US (occurrence: US)
  Receive Date: 20241105
  Receipt Date: 20241105
  Transmission Date: 20250114
  Serious: No
  Sender: IMMUNOCORE
  Company Number: US-IMMUNOCORE, LTD-2024-IMC-002935

PATIENT
  Sex: Male

DRUGS (1)
  1. KIMMTRAK [Suspect]
     Active Substance: TEBENTAFUSP-TEBN
     Indication: Product used for unknown indication
     Dosage: DOSE 3/ 68MCG
     Dates: start: 20240801

REACTIONS (4)
  - Infection [Unknown]
  - Hypotension [Unknown]
  - Pyrexia [Unknown]
  - Cytokine release syndrome [Unknown]
